FAERS Safety Report 7370312-0 (Version None)
Quarter: 2011Q1

REPORT INFORMATION
  Report Type: 
  Country: None (occurrence: None)
  Receive Date: 20110323
  Receipt Date: 20110322
  Transmission Date: 20110831
  Serious: Yes (Other)
  Sender: FDA-Public Use
  Company Number: PHHO2011PL01397

PATIENT
  Sex: Male
  Weight: 78 kg

DRUGS (2)
  1. FTY 720 [Suspect]
     Indication: MULTIPLE SCLEROSIS
     Dosage: DOSE BLINDED
     Route: 048
     Dates: start: 20040715, end: 20100413
  2. FTY 720 [Suspect]
     Dosage: 0.5 MG,
     Route: 048
     Dates: start: 20100414, end: 20110116

REACTIONS (4)
  - MELANOCYTIC NAEVUS [None]
  - SKIN NEOPLASM EXCISION [None]
  - SCAR [None]
  - LENTIGO MALIGNA STAGE UNSPECIFIED [None]
